FAERS Safety Report 8180035-6 (Version None)
Quarter: 2012Q1

REPORT INFORMATION
  Report Type: 
  Country: None (occurrence: None)
  Receive Date: 20120302
  Receipt Date: 20120223
  Transmission Date: 20120608
  Serious: Yes (Hospitalization)
  Sender: FDA-Public Use
  Company Number: FR-US-EMD SERONO, INC.-7114957

PATIENT
  Age: 65 Year
  Sex: Female

DRUGS (2)
  1. REBIF [Suspect]
     Indication: MULTIPLE SCLEROSIS
     Route: 058
     Dates: start: 20110919, end: 20111207
  2. CORTICOIDS [Concomitant]
     Indication: MULTIPLE SCLEROSIS RELAPSE
     Route: 040
     Dates: start: 20111205, end: 20111207

REACTIONS (3)
  - MULTIPLE SCLEROSIS RELAPSE [None]
  - TACHYCARDIA [None]
  - PYREXIA [None]
